FAERS Safety Report 10014577 (Version 2)
Quarter: 2014Q1

REPORT INFORMATION
  Report Type: Spontaneous
  Country: IN (occurrence: IN)
  Receive Date: 20140317
  Receipt Date: 20140320
  Transmission Date: 20141002
  Serious: Yes (Hospitalization, Other)
  Sender: FDA-Public Use
  Company Number: IN-009507513-1403IND006810

PATIENT
  Age: 31 Year
  Sex: Male
  Weight: 60 kg

DRUGS (3)
  1. SITAGLIPTIN PHOSPHATE [Suspect]
     Indication: TYPE 2 DIABETES MELLITUS
     Dosage: UNK, QD
     Route: 048
  2. SITAGLIPTIN PHOSPHATE [Suspect]
     Dosage: 2200MG
     Route: 048
  3. SITAGLIPTIN PHOSPHATE [Suspect]
     Dosage: UNK
     Route: 048

REACTIONS (3)
  - Suicide attempt [Recovered/Resolved]
  - Intentional overdose [Unknown]
  - Blood glucose fluctuation [Recovered/Resolved]
